FAERS Safety Report 9303893 (Version 1)
Quarter: 2013Q2

REPORT INFORMATION
  Report Type: Spontaneous
  Country: US (occurrence: None)
  Receive Date: 20130521
  Receipt Date: 20130521
  Transmission Date: 20140414
  Serious: Yes (Life-Threatening, Hospitalization)
  Sender: FDA-Public Use
  Company Number: None

PATIENT
  Age: 92 Year
  Sex: Female
  Weight: 73 kg

DRUGS (1)
  1. CLOPIDOGREL [Suspect]
     Indication: ATRIAL FIBRILLATION
     Route: 048

REACTIONS (7)
  - Haemorrhagic anaemia [None]
  - Diverticulum intestinal [None]
  - Large intestinal haemorrhage [None]
  - Gastrointestinal angiodysplasia [None]
  - Cough [None]
  - Oedema [None]
  - Dyspnoea [None]
